FAERS Safety Report 17987369 (Version 1)
Quarter: 2020Q3

REPORT INFORMATION
  Report Type: Spontaneous
  Country: US (occurrence: US)
  Receive Date: 20200705
  Receipt Date: 20200705
  Transmission Date: 20201103
  Serious: Yes (Hospitalization)
  Sender: FDA-Public Use
  Company Number: None

PATIENT
  Age: 60 Year
  Sex: Female

DRUGS (1)
  1. COPAXONE [Suspect]
     Active Substance: GLATIRAMER ACETATE
     Indication: MULTIPLE SCLEROSIS
     Route: 058
     Dates: start: 20120102

REACTIONS (5)
  - Fall [None]
  - Amnesia [None]
  - Loss of consciousness [None]
  - Concussion [None]
  - Restless legs syndrome [None]

NARRATIVE: CASE EVENT DATE: 20200630
